FAERS Safety Report 23330470 (Version 3)
Quarter: 2024Q3

REPORT INFORMATION
  Report Type: Spontaneous
  Country: IT (occurrence: IT)
  Receive Date: 20231222
  Receipt Date: 20240803
  Transmission Date: 20241016
  Serious: Yes (Death, Hospitalization, Other)
  Sender: ACCORD
  Company Number: IT-Accord-396182

PATIENT
  Age: 81 Year
  Sex: Male

DRUGS (2)
  1. APIXABAN [Suspect]
     Active Substance: APIXABAN
     Indication: Atrial fibrillation
  2. ENOXAPARIN [Suspect]
     Active Substance: ENOXAPARIN
     Indication: Atrial fibrillation

REACTIONS (7)
  - Anticoagulant-related nephropathy [Fatal]
  - Anaemia [Unknown]
  - Pulmonary alveolar haemorrhage [Unknown]
  - Hypotension [Unknown]
  - Post procedural haemorrhage [Recovering/Resolving]
  - Arterial injury [Unknown]
  - Multiple organ dysfunction syndrome [Fatal]
